FAERS Safety Report 5827144-1 (Version None)
Quarter: 2008Q3

REPORT INFORMATION
  Report Type: 
  Country: None (occurrence: None)
  Receive Date: 20080724
  Receipt Date: 20080711
  Transmission Date: 20090109
  Serious: Yes (Other)
  Sender: FDA-Public Use
  Company Number: 2008058999

PATIENT
  Age: 31 Year
  Sex: Female

DRUGS (1)
  1. FRAGMIN [Suspect]
     Indication: PROPHYLAXIS
     Dosage: 10000+7500 E, SUBCUTANEOUS
     Route: 058
     Dates: start: 20070901, end: 20080101

REACTIONS (5)
  - DRUG EXPOSURE DURING PREGNANCY [None]
  - OSTEOPOROSIS [None]
  - PAIN [None]
  - RIB FRACTURE [None]
  - SPINAL COMPRESSION FRACTURE [None]
